FAERS Safety Report 23180302 (Version 2)
Quarter: 2023Q4

REPORT INFORMATION
  Report Type: Report from Study
  Country: CA (occurrence: CA)
  Receive Date: 20231114
  Receipt Date: 20231114
  Transmission Date: 20240110
  Serious: Yes (Other)
  Sender: FDA-Public Use
  Company Number: CA-ALXN-A202308975AA

PATIENT
  Age: 20 Year
  Sex: Female
  Weight: 81.3 kg

DRUGS (2)
  1. SOLIRIS [Suspect]
     Active Substance: ECULIZUMAB
     Indication: Malignant atrophic papulosis
     Dosage: 900 MG, QW
     Route: 042
     Dates: start: 20201002, end: 20201023
  2. SOLIRIS [Suspect]
     Active Substance: ECULIZUMAB
     Dosage: 1200 MG, Q2W
     Route: 042
     Dates: start: 20201030

REACTIONS (5)
  - Malignant atrophic papulosis [Unknown]
  - Condition aggravated [Unknown]
  - Off label use [Unknown]
  - Chest pain [Not Recovered/Not Resolved]
  - Fatigue [Unknown]

NARRATIVE: CASE EVENT DATE: 20230801
